FAERS Safety Report 12533486 (Version 1)
Quarter: 2016Q3

REPORT INFORMATION
  Report Type: Spontaneous
  Country: US (occurrence: US)
  Receive Date: 20160706
  Receipt Date: 20160706
  Transmission Date: 20161109
  Serious: No
  Sender: FDA-Public Use
  Company Number: US-PURDUE-USA-2015-0127617

PATIENT
  Age: 59 Year
  Sex: Male
  Weight: 79.37 kg

DRUGS (2)
  1. BUTRANS [Suspect]
     Active Substance: BUPRENORPHINE
     Indication: POLYNEUROPATHY IDIOPATHIC PROGRESSIVE
     Dosage: 10 MCG/HR, WEEKLY
     Route: 062
     Dates: start: 20150908, end: 20151103
  2. BUTRANS [Suspect]
     Active Substance: BUPRENORPHINE
     Dosage: 15 MCG/HR, WEEKLY
     Route: 062

REACTIONS (6)
  - Skin irritation [Unknown]
  - Urticaria [Unknown]
  - Furuncle [Unknown]
  - Erythema [Unknown]
  - Purulent discharge [Unknown]
  - Rash [Unknown]

NARRATIVE: CASE EVENT DATE: 201511
